FAERS Safety Report 4970182-1 (Version None)
Quarter: 2006Q2

REPORT INFORMATION
  Report Type: 
  Country: None (occurrence: None)
  Receive Date: 20060406
  Receipt Date: 20060325
  Transmission Date: 20061013
  Serious: Yes (Hospitalization, Other)
  Sender: FDA-Public Use
  Company Number: 2006033133

PATIENT
  Age: 66 Year
  Sex: Female

DRUGS (9)
  1. CELEBREX [Suspect]
     Indication: MUSCULOSKELETAL CHEST PAIN
     Dates: end: 20060310
  2. LYRICA [Suspect]
     Indication: PAIN
     Dates: start: 20060314
  3. TOPROL-XL [Concomitant]
  4. NORVASC [Concomitant]
  5. ZOCOR [Concomitant]
  6. COZAAR [Concomitant]
  7. PLAVIX [Concomitant]
  8. OSCAL (CALCIUM CARBONATE) [Concomitant]
  9. PREVACID [Concomitant]

REACTIONS (7)
  - ARTHRITIS [None]
  - CONFUSIONAL STATE [None]
  - CORONARY ARTERY OCCLUSION [None]
  - DIZZINESS [None]
  - INSOMNIA [None]
  - PAIN IN EXTREMITY [None]
  - STOMACH DISCOMFORT [None]
